FAERS Safety Report 6539688-8 (Version None)
Quarter: 2010Q1

REPORT INFORMATION
  Report Type: 
  Country: None (occurrence: None)
  Receive Date: 20100115
  Receipt Date: 20100104
  Transmission Date: 20100710
  Serious: Yes (Other)
  Sender: FDA-Public Use
  Company Number: SE-JNJFOC-20100104527

PATIENT
  Age: 25 Year
  Sex: Male

DRUGS (1)
  1. RISPERDAL CONSTA [Suspect]
     Indication: DELUSION
     Route: 030

REACTIONS (6)
  - ADVERSE EVENT [None]
  - ASTHENIA [None]
  - CARDIAC DISORDER [None]
  - DEPRESSION [None]
  - ERECTILE DYSFUNCTION [None]
  - FATIGUE [None]
